FAERS Safety Report 18087906 (Version 1)
Quarter: 2020Q3

REPORT INFORMATION
  Report Type: Spontaneous
  Country: ES (occurrence: ES)
  Receive Date: 20200729
  Receipt Date: 20200729
  Transmission Date: 20201103
  Serious: Yes (Death, Hospitalization)
  Sender: FDA-Public Use
  Company Number: ES-AMNEAL PHARMACEUTICALS-2020-AMRX-02148

PATIENT
  Age: 41 Year
  Sex: Male

DRUGS (4)
  1. VENLAFAXINE [Suspect]
     Active Substance: VENLAFAXINE HYDROCHLORIDE
     Indication: ADJUSTMENT DISORDER WITH DEPRESSED MOOD
     Dosage: 150 MILLIGRAM, DAILY
     Route: 065
  2. DIAZEPAM. [Concomitant]
     Active Substance: DIAZEPAM
     Indication: ADJUSTMENT DISORDER WITH DEPRESSED MOOD
     Dosage: 2 MILLIGRAM, BEDTIME OCCASIONALLY
     Route: 065
  3. TRAMADOL HYDROCHLORIDE AND ACETAMINOPHEN [Suspect]
     Active Substance: ACETAMINOPHEN\TRAMADOL HYDROCHLORIDE
     Dosage: BETWEEN 6 AND 12 TABLETS/DAY FOR PAST 2 YRS
     Route: 065
  4. TRAMADOL HYDROCHLORIDE AND ACETAMINOPHEN [Suspect]
     Active Substance: ACETAMINOPHEN\TRAMADOL HYDROCHLORIDE
     Indication: SPINAL OSTEOARTHRITIS
     Dosage: TOOK ONLY SPORADICALLY FOR THE FIRST 3 YEARS
     Route: 065

REACTIONS (6)
  - Skull fractured base [Fatal]
  - Fall [Fatal]
  - Upper limb fracture [Fatal]
  - Craniocerebral injury [Fatal]
  - Toxicity to various agents [Fatal]
  - Pulmonary contusion [Fatal]
